FAERS Safety Report 7498309-0 (Version None)
Quarter: 2011Q2

REPORT INFORMATION
  Report Type: 
  Country: None (occurrence: None)
  Receive Date: 20110524
  Receipt Date: 20110519
  Transmission Date: 20111010
  Serious: Yes (Life-Threatening, Hospitalization)
  Sender: FDA-Public Use
  Company Number: DE-BAYER-2011-043301

PATIENT

DRUGS (1)
  1. ULTRAVIST 150 [Suspect]
     Dosage: UNK

REACTIONS (2)
  - GASTRIC DISORDER [None]
  - DRY THROAT [None]
